FAERS Safety Report 19419396 (Version 3)
Quarter: 2022Q2

REPORT INFORMATION
  Report Type: Spontaneous
  Country: CA (occurrence: CA)
  Receive Date: 20210615
  Receipt Date: 20220420
  Transmission Date: 20220721
  Serious: Yes (Other)
  Sender: FDA-Public Use
  Company Number: CA-SAMSUNG BIOEPIS-SB-2021-14179

PATIENT
  Age: 58 Year
  Sex: Male
  Weight: 127 kg

DRUGS (1)
  1. INFLIXIMAB [Suspect]
     Active Substance: INFLIXIMAB
     Indication: Ankylosing spondylitis
     Route: 042

REACTIONS (7)
  - Chills [Unknown]
  - Pruritus [Unknown]
  - Throat irritation [Unknown]
  - Erythema [Unknown]
  - Urticaria [Unknown]
  - Infusion related reaction [Unknown]
  - Off label use [Unknown]
